FAERS Safety Report 21298350 (Version 1)
Quarter: 2022Q3

REPORT INFORMATION
  Report Type: Spontaneous
  Country: US (occurrence: US)
  Receive Date: 20220906
  Receipt Date: 20220906
  Transmission Date: 20221027
  Serious: Yes (Other)
  Sender: FDA-Public Use
  Company Number: US-MYLANLABS-2022M1091606

PATIENT
  Sex: Male

DRUGS (35)
  1. CLINDAMYCIN [Suspect]
     Active Substance: CLINDAMYCIN
     Indication: Hydroa vacciniforme
     Dosage: TOPICAL AND SYSTEMIC
     Route: 061
     Dates: start: 2015, end: 201607
  2. CLINDAMYCIN [Suspect]
     Active Substance: CLINDAMYCIN
     Indication: Lymphoma
  3. CLINDAMYCIN [Suspect]
     Active Substance: CLINDAMYCIN
     Indication: Antibiotic therapy
  4. SULFAMETHOXAZOLE\TRIMETHOPRIM [Suspect]
     Active Substance: SULFAMETHOXAZOLE\TRIMETHOPRIM
     Indication: Hydroa vacciniforme
     Dosage: TOPICAL AND SYSTEMIC
     Route: 061
     Dates: start: 2015, end: 201607
  5. SULFAMETHOXAZOLE\TRIMETHOPRIM [Suspect]
     Active Substance: SULFAMETHOXAZOLE\TRIMETHOPRIM
     Indication: Lymphoma
  6. SULFAMETHOXAZOLE\TRIMETHOPRIM [Suspect]
     Active Substance: SULFAMETHOXAZOLE\TRIMETHOPRIM
     Indication: Antibiotic therapy
  7. METHOTREXATE [Suspect]
     Active Substance: METHOTREXATE
     Indication: Hydroa vacciniforme
     Dosage: 7.5 MILLIGRAM, QW
     Route: 048
     Dates: start: 201607
  8. METHOTREXATE [Suspect]
     Active Substance: METHOTREXATE
     Indication: Lymphoma
     Dosage: 20 MILLIGRAM, QW
     Route: 048
     Dates: end: 201702
  9. METHOTREXATE [Suspect]
     Active Substance: METHOTREXATE
     Dosage: 7.5 MILLIGRAM, QW
     Route: 048
     Dates: start: 201709, end: 2018
  10. METHOTREXATE [Suspect]
     Active Substance: METHOTREXATE
     Dosage: 15 MILLIGRAM, QW
     Route: 048
  11. METHOTREXATE [Suspect]
     Active Substance: METHOTREXATE
     Dosage: 7.5 MILLIGRAM, QW
     Route: 048
  12. DOXORUBICIN [Suspect]
     Active Substance: DOXORUBICIN
     Indication: Hydroa vacciniforme
     Dosage: AS A PART OF CHOEP REGIMEN
     Route: 065
     Dates: start: 201808
  13. DOXORUBICIN [Suspect]
     Active Substance: DOXORUBICIN
     Indication: Lymphoma
  14. ETOPOSIDE [Suspect]
     Active Substance: ETOPOSIDE
     Indication: Lymphoma
     Dosage: AS A PART OF CHOEP REGIMEN
     Dates: start: 201808
  15. ETOPOSIDE [Suspect]
     Active Substance: ETOPOSIDE
     Indication: Hydroa vacciniforme
  16. DAPSONE [Suspect]
     Active Substance: DAPSONE
     Indication: Hydroa vacciniforme
     Dosage: 50 MILLIGRAM, QD
     Route: 065
     Dates: start: 2017, end: 2017
  17. DAPSONE [Suspect]
     Active Substance: DAPSONE
     Indication: Lymphoma
     Dosage: 150 MILLIGRAM, QD
     Route: 065
     Dates: start: 2017, end: 2017
  18. PREDNISONE [Suspect]
     Active Substance: PREDNISONE
     Indication: Hydroa vacciniforme
     Dosage: 40 MILLIGRAM, QD (AS A PART OF METHOTREXATE AND PREDNISONE)
     Route: 065
     Dates: end: 201702
  19. PREDNISONE [Suspect]
     Active Substance: PREDNISONE
     Indication: Lymphoma
     Dosage: UNK (AS A PART OF THALIDOMIDE AND PREDNISONE)
     Route: 065
     Dates: start: 201802, end: 201804
  20. PREDNISONE [Suspect]
     Active Substance: PREDNISONE
     Dosage: 20 MILLIGRAM, QD
     Route: 065
     Dates: start: 2018, end: 2018
  21. PREDNISONE [Suspect]
     Active Substance: PREDNISONE
     Dosage: AS A PART OF CHOEP REGIMEN
     Route: 065
     Dates: start: 201808
  22. PREDNISONE [Suspect]
     Active Substance: PREDNISONE
     Dosage: REINITIATED THERAPY
     Route: 065
  23. MYCOPHENOLATE MOFETIL [Suspect]
     Active Substance: MYCOPHENOLATE MOFETIL
     Indication: Hydroa vacciniforme
     Dosage: 500 MILLIGRAM, BID
     Route: 065
     Dates: start: 2017, end: 2017
  24. MYCOPHENOLATE MOFETIL [Suspect]
     Active Substance: MYCOPHENOLATE MOFETIL
     Indication: Lymphoma
  25. CEPHALEXIN [Suspect]
     Active Substance: CEPHALEXIN
     Indication: Hydroa vacciniforme
     Dosage: TOPICAL AND SYSTEMIC
     Route: 061
     Dates: start: 2015, end: 201607
  26. CEPHALEXIN [Suspect]
     Active Substance: CEPHALEXIN
     Indication: Lymphoma
  27. CEPHALEXIN [Suspect]
     Active Substance: CEPHALEXIN
     Indication: Antibiotic therapy
  28. THALIDOMIDE [Suspect]
     Active Substance: THALIDOMIDE
     Indication: Hydroa vacciniforme
     Dosage: UNK
     Route: 065
     Dates: start: 201802, end: 201804
  29. THALIDOMIDE [Suspect]
     Active Substance: THALIDOMIDE
     Indication: Lymphoma
  30. CYCLOPHOSPHAMIDE [Suspect]
     Active Substance: CYCLOPHOSPHAMIDE
     Indication: Hydroa vacciniforme
     Dosage: AS A PART OF CHOEP REGIMEN
     Route: 065
     Dates: start: 201808
  31. CYCLOPHOSPHAMIDE [Suspect]
     Active Substance: CYCLOPHOSPHAMIDE
     Indication: Lymphoma
  32. VINCRISTINE [Suspect]
     Active Substance: VINCRISTINE
     Indication: Hydroa vacciniforme
     Dosage: AS A PART OF CHOEP REGIMEN
     Route: 065
     Dates: start: 201808
  33. VINCRISTINE [Suspect]
     Active Substance: VINCRISTINE
     Indication: Lymphoma
  34. ROMIDEPSIN [Concomitant]
     Active Substance: ROMIDEPSIN
     Indication: Hydroa vacciniforme
     Dosage: UNK
     Route: 065
     Dates: start: 2018, end: 2018
  35. ROMIDEPSIN [Concomitant]
     Active Substance: ROMIDEPSIN
     Indication: Lymphoma

REACTIONS (4)
  - Pancytopenia [Unknown]
  - Hepatic function abnormal [Unknown]
  - Drug ineffective [Unknown]
  - Off label use [Unknown]
